FAERS Safety Report 10173435 (Version 1)
Quarter: 2014Q2

REPORT INFORMATION
  Report Type: Spontaneous
  Country: TR (occurrence: TR)
  Receive Date: 20140515
  Receipt Date: 20140515
  Transmission Date: 20141212
  Serious: Yes (Death, Other)
  Sender: FDA-Public Use
  Company Number: TR-TEVA-480521ISR

PATIENT
  Age: 5 Year
  Sex: Male

DRUGS (8)
  1. VINCRISTINE [Suspect]
     Indication: T-CELL TYPE ACUTE LEUKAEMIA
     Route: 065
  2. ETOPOSIDE [Suspect]
     Indication: T-CELL TYPE ACUTE LEUKAEMIA
     Route: 065
  3. DOXORUBICIN [Suspect]
     Indication: T-CELL TYPE ACUTE LEUKAEMIA
     Route: 065
  4. METHOTREXATE [Suspect]
     Indication: T-CELL TYPE ACUTE LEUKAEMIA
     Route: 037
  5. TACROLIMUS [Suspect]
     Indication: IMMUNOSUPPRESSANT DRUG THERAPY
     Route: 065
  6. PREDNISOLONE [Suspect]
     Indication: IMMUNOSUPPRESSANT DRUG THERAPY
     Route: 065
  7. PREDNISOLONE [Suspect]
     Indication: T-CELL TYPE ACUTE LEUKAEMIA
     Route: 065
  8. CYCLOPHOSPHAMIDE [Suspect]
     Indication: T-CELL TYPE ACUTE LEUKAEMIA
     Route: 065

REACTIONS (2)
  - Sepsis [Fatal]
  - T-cell type acute leukaemia [Unknown]
